FAERS Safety Report 14714886 (Version 3)
Quarter: 2018Q3

REPORT INFORMATION
  Report Type: Spontaneous
  Country: US (occurrence: US)
  Receive Date: 20180404
  Receipt Date: 20180713
  Transmission Date: 20181010
  Serious: Yes (Hospitalization, Other)
  Sender: FDA-Public Use
  Company Number: US-PFIZER INC-2018132308

PATIENT
  Age: 50 Year
  Sex: Female
  Weight: 78.2 kg

DRUGS (4)
  1. DILANTIN [Suspect]
     Active Substance: PHENYTOIN
     Indication: GENERALISED TONIC-CLONIC SEIZURE
     Dosage: 100 MG, 3X/DAY
     Dates: start: 1968
  2. DILANTIN [Suspect]
     Active Substance: PHENYTOIN
     Dosage: 100 MG, 1X/DAY(100 MG CAPSULES AT BED TIME)
     Route: 048
  3. PHENOBARBITAL. [Concomitant]
     Active Substance: PHENOBARBITAL
     Indication: GENERALISED TONIC-CLONIC SEIZURE
     Dosage: 97.2 MG, UNK
     Dates: start: 1968
  4. PHENOBARBITAL. [Concomitant]
     Active Substance: PHENOBARBITAL
     Dosage: 194.4 MG, 1X/DAY(TWO; 97.2 MG TABLETS AT BED TIME)
     Route: 048

REACTIONS (7)
  - Breast cancer female [Unknown]
  - Body height decreased [Not Recovered/Not Resolved]
  - Fall [Recovered/Resolved]
  - Drug dose omission [Unknown]
  - Osteoporosis [Unknown]
  - Renal failure [Not Recovered/Not Resolved]
  - Lymphoedema [Recovering/Resolving]

NARRATIVE: CASE EVENT DATE: 2004
